FAERS Safety Report 4342723-9 (Version None)
Quarter: 2004Q2

REPORT INFORMATION
  Report Type: 
  Country: None (occurrence: None)
  Receive Date: 20040409
  Receipt Date: 20031001
  Transmission Date: 20050107
  Serious: No
  Sender: FDA-Public Use
  Company Number: 03I-163-0235748-00

PATIENT
  Age: 44 Year
  Sex: Male

DRUGS (7)
  1. DEPAKOTE [Suspect]
     Indication: CONVULSION
     Dosage: SEE IMAGE
     Route: 048
     Dates: start: 20030201, end: 20030720
  2. DEPAKOTE [Suspect]
     Indication: CONVULSION
     Dosage: SEE IMAGE
     Route: 048
     Dates: start: 20030721, end: 20030811
  3. DEPAKOTE [Suspect]
     Indication: CONVULSION
     Dosage: SEE IMAGE
     Route: 048
     Dates: start: 20030812, end: 20030825
  4. DEPAKOTE [Suspect]
     Indication: CONVULSION
     Dosage: SEE IMAGE
     Route: 048
     Dates: start: 20030826
  5. LEXAPRO [Suspect]
     Indication: DEPRESSION
     Dosage: 20; 10 MG, 1 IN 1 D, PER ORAL
     Route: 048
     Dates: start: 20030401, end: 20030501
  6. LEXAPRO [Suspect]
     Indication: DEPRESSION
     Dosage: 20; 10 MG, 1 IN 1 D, PER ORAL
     Route: 048
     Dates: start: 20030501
  7. CARBAMAZEPINE [Concomitant]

REACTIONS (2)
  - ANTICONVULSANT DRUG LEVEL BELOW THERAPEUTIC [None]
  - CONVULSION [None]
